FAERS Safety Report 14149511 (Version 1)
Quarter: 2017Q4

REPORT INFORMATION
  Report Type: Report from Study
  Country: US (occurrence: US)
  Receive Date: 20171101
  Receipt Date: 20171101
  Transmission Date: 20180321
  Serious: Yes (Hospitalization)
  Sender: FDA-Public Use
  Company Number: US-BAYER-2017-206997

PATIENT
  Age: 39 Year
  Sex: Female

DRUGS (1)
  1. BETASERON [Suspect]
     Active Substance: INTERFERON BETA-1B
     Indication: MULTIPLE SCLEROSIS
     Dosage: 0.25 MG, QOD
     Route: 058
     Dates: start: 20021009, end: 20171009

REACTIONS (5)
  - Lung disorder [None]
  - Swelling [None]
  - Migraine [None]
  - Dyspnoea [None]
  - Cardiac failure congestive [None]

NARRATIVE: CASE EVENT DATE: 2016
